FAERS Safety Report 13450664 (Version 1)
Quarter: 2017Q2

REPORT INFORMATION
  Report Type: Spontaneous
  Country: US (occurrence: US)
  Receive Date: 20170418
  Receipt Date: 20170418
  Transmission Date: 20170830
  Serious: No
  Sender: FDA-Public Use
  Company Number: US-009507513-1704USA007168

PATIENT
  Age: 17 Year
  Sex: Female
  Weight: 45.35 kg

DRUGS (2)
  1. VITAMINS (UNSPECIFIED) [Concomitant]
     Active Substance: VITAMINS
  2. NUVARING [Suspect]
     Active Substance: ETHINYL ESTRADIOL\ETONOGESTREL
     Indication: CONTRACEPTION
     Dosage: CONTINOUSLY, INSIDE THE VAGINA
     Route: 067

REACTIONS (2)
  - Withdrawal bleed [Unknown]
  - Inappropriate schedule of drug administration [Unknown]
